APPROVED DRUG PRODUCT: DIAZEPAM
Active Ingredient: DIAZEPAM
Strength: 5MG
Dosage Form/Route: TABLET;ORAL
Application: A070996 | Product #001
Applicant: HALSEY DRUG CO INC
Approved: Aug 15, 1986 | RLD: No | RS: No | Type: DISCN